FAERS Safety Report 7563403-2 (Version None)
Quarter: 2011Q2

REPORT INFORMATION
  Report Type: 
  Country: None (occurrence: None)
  Receive Date: 20110622
  Receipt Date: 20110620
  Transmission Date: 20111010
  Serious: Yes (Hospitalization, Disabling)
  Sender: FDA-Public Use
  Company Number: B0134023A

PATIENT
  Age: 52 Year
  Sex: Female

DRUGS (3)
  1. METHYLPREDNISOLONE [Concomitant]
     Dosage: 1.5G PER DAY
     Route: 042
  2. MELPHALAN HYDROCHLORIDE [Suspect]
     Indication: STEM CELL TRANSPLANT
     Dosage: 200MGM2 PER DAY
  3. CYCLOPHOSPHAMIDE [Concomitant]
     Dosage: 300MGM2 PER DAY
     Route: 042

REACTIONS (15)
  - DYSPHAGIA [None]
  - SOMNOLENCE [None]
  - GRIMACING [None]
  - CHEST PAIN [None]
  - CONVULSION [None]
  - ENCEPHALOPATHY [None]
  - MELAENA [None]
  - GRAND MAL CONVULSION [None]
  - MUCOSAL INFLAMMATION [None]
  - LOSS OF CONSCIOUSNESS [None]
  - COMA [None]
  - STAPHYLOCOCCAL SEPSIS [None]
  - DIARRHOEA HAEMORRHAGIC [None]
  - PLATELET COUNT DECREASED [None]
  - ENTEROCOCCAL SEPSIS [None]
